FAERS Safety Report 23910491 (Version 5)
Quarter: 2025Q2

REPORT INFORMATION
  Report Type: Report from Study
  Country: US (occurrence: US)
  Receive Date: 20240528
  Receipt Date: 20250422
  Transmission Date: 20250716
  Serious: Yes (Hospitalization, Other)
  Sender: AVADEL CNS PHARMACEUTICALS, LLC
  Company Number: US-AVADEL CNS PHARMACEUTICALS, LLC-2024AVA00621

PATIENT
  Sex: Female
  Weight: 70.748 kg

DRUGS (30)
  1. LUMRYZ [Suspect]
     Active Substance: SODIUM OXYBATE
     Indication: Narcolepsy
     Dosage: 7.5 G, ONCE NIGHTLY AT BEDTIME ON AN EMPTY STOMACH
     Route: 048
     Dates: start: 20240412, end: 2024
  2. LUMRYZ [Suspect]
     Active Substance: SODIUM OXYBATE
     Indication: Hypersomnia
     Dosage: 6 G (PARTIAL PACKAGE), ONCE NIGHTLY AT BEDTIME ON AN EMPTY STOMACH
     Route: 048
     Dates: start: 202409, end: 2024
  3. LUMRYZ [Suspect]
     Active Substance: SODIUM OXYBATE
     Dosage: 7.5 G, ONCE NIGHTLY AT BEDTIME ON AN EMPTY STOMACH
     Route: 048
     Dates: start: 202411
  4. LUMRYZ [Suspect]
     Active Substance: SODIUM OXYBATE
     Indication: Narcolepsy
     Dosage: 6 G, ONCE NIGHTLY AT BEDTIME ON AN EMPTY STOMACH
     Route: 048
     Dates: start: 2024, end: 202411
  5. LUMRYZ [Suspect]
     Active Substance: SODIUM OXYBATE
     Indication: Hypersomnia
  6. NABUMETONE [Concomitant]
     Active Substance: NABUMETONE
     Dosage: 500 MG, TWICE DAILY
     Route: 048
  7. METFORMIN [Concomitant]
     Active Substance: METFORMIN HYDROCHLORIDE
     Dosage: 1000 MG, 1X/DAY
     Route: 048
     Dates: end: 2024
  8. METFORMIN [Concomitant]
     Active Substance: METFORMIN HYDROCHLORIDE
     Dosage: 1000 MG, TWICE DAILY
     Route: 048
     Dates: start: 2024
  9. ATORVASTATIN CALCIUM [Concomitant]
     Active Substance: ATORVASTATIN CALCIUM
     Dosage: 20 MG, ONCE DAILY
     Route: 048
     Dates: end: 2024
  10. FAMOTIDINE [Concomitant]
     Active Substance: FAMOTIDINE
     Dosage: 40 MG, 1X/DAY
     Route: 048
     Dates: end: 2024
  11. FAMOTIDINE [Concomitant]
     Active Substance: FAMOTIDINE
     Dosage: 40 MG, TWICE DAILY
     Route: 048
     Dates: start: 2024
  12. METOPROLOL TARTRATE [Concomitant]
     Active Substance: METOPROLOL TARTRATE
     Dosage: 50 MG, TWICE DAILY
     Route: 048
  13. HYDROCHLOROTHIAZIDE\LOSARTAN POTASSIUM [Concomitant]
     Active Substance: HYDROCHLOROTHIAZIDE\LOSARTAN POTASSIUM
     Dosage: 1 TABLET (50/12.5 MG), ONCE DAILY
     Route: 048
  14. TRULICITY [Concomitant]
     Active Substance: DULAGLUTIDE
     Dosage: 4.5 MG, ONCE WEEKLY
     Route: 058
  15. TRAMADOL [Concomitant]
     Active Substance: TRAMADOL
     Dosage: 100 MG, ONCE DAILY AT BEDTIME
     Route: 048
  16. FARXIGA [Concomitant]
     Active Substance: DAPAGLIFLOZIN PROPANEDIOL
     Dosage: 5 MG, 1X/DAY
     Route: 048
     Dates: end: 2024
  17. FARXIGA [Concomitant]
     Active Substance: DAPAGLIFLOZIN PROPANEDIOL
     Dosage: 10 MG, ONCE DAILY
     Route: 048
     Dates: start: 2024
  18. FENOFIBRATE [Concomitant]
     Active Substance: FENOFIBRATE
     Dosage: 145 MG, ONCE DAILY
  19. WAKIX [Concomitant]
     Active Substance: PITOLISANT HYDROCHLORIDE
     Dosage: 35.6 MG, ONCE DAILY IN THE MORNING
     Route: 048
  20. MINERALS\VITAMINS [Concomitant]
     Active Substance: MINERALS\VITAMINS
     Dosage: 1 TABLETS, 2X/DAY
     Route: 048
  21. HERBALS\TURMERIC [Concomitant]
     Active Substance: HERBALS\TURMERIC
     Dosage: 500 MG, ONCE DAILY
  22. VITAMIN B COMPLEX [Concomitant]
     Active Substance: CYANOCOBALAMIN\DEXPANTHENOL\NIACINAMIDE\PYRIDOXINE HYDROCHLORIDE\RIBOFLAVIN 5^-PHOSPHATE SODIUM\THIA
     Dosage: 1 TABLETS, 1X/DAY
     Route: 048
  23. PROBIOTICS NOS [Concomitant]
     Active Substance: PROBIOTICS NOS
     Dosage: 250 MG, 2X/DAY
     Route: 048
  24. CINNAMON [CINNAMOMUM VERUM] [Concomitant]
  25. VITAMINS NOS [Concomitant]
     Active Substance: VITAMINS
     Dosage: 1 TABLETS, 1X/DAY
     Route: 048
  26. MAGNESIUM [Concomitant]
     Active Substance: MAGNESIUM
     Dosage: 250 MG, 1X/DAY
     Route: 048
  27. CLARITIN [Concomitant]
     Active Substance: LORATADINE
     Dosage: 10 MG, 1X/DAY
     Route: 048
     Dates: end: 2024
  28. XHANCE [Concomitant]
     Active Substance: FLUTICASONE PROPIONATE
     Dosage: 1 SPRAY IN EACH NOSTRIL, 2X/DAY
     Route: 045
     Dates: end: 2024
  29. ATORVASTATIN CALCIUM [Concomitant]
     Active Substance: ATORVASTATIN CALCIUM
     Dosage: 80 MG, 1X/DAY
     Route: 048
  30. TRULICITY [Concomitant]
     Active Substance: DULAGLUTIDE
     Route: 058

REACTIONS (23)
  - Blindness [Not Recovered/Not Resolved]
  - Cerebrovascular accident [Unknown]
  - Retinal vein occlusion [Not Recovered/Not Resolved]
  - Retinal vasculitis [Not Recovered/Not Resolved]
  - Macular telangiectasia [Not Recovered/Not Resolved]
  - Macular degeneration [Not Recovered/Not Resolved]
  - Retching [Unknown]
  - Fatigue [Not Recovered/Not Resolved]
  - Middle insomnia [Not Recovered/Not Resolved]
  - Terminal insomnia [Not Recovered/Not Resolved]
  - Gastrooesophageal reflux disease [Not Recovered/Not Resolved]
  - Dry eye [Not Recovered/Not Resolved]
  - Cataract [Not Recovered/Not Resolved]
  - Photopsia [Not Recovered/Not Resolved]
  - Retinal pigment epithelium change [Not Recovered/Not Resolved]
  - Diabetic retinopathy [Not Recovered/Not Resolved]
  - Visual field defect [Not Recovered/Not Resolved]
  - Headache [Unknown]
  - Nausea [Unknown]
  - Vomiting [Recovered/Resolved]
  - Weight decreased [Not Recovered/Not Resolved]
  - Product dose omission issue [Recovered/Resolved]
  - Wrong technique in product usage process [Recovered/Resolved]

NARRATIVE: CASE EVENT DATE: 20240101
